FAERS Safety Report 9683547 (Version 4)
Quarter: 2014Q1

REPORT INFORMATION
  Report Type: Spontaneous
  Country: JP (occurrence: JP)
  Receive Date: 20131112
  Receipt Date: 20140213
  Transmission Date: 20141002
  Serious: Yes (Other)
  Sender: FDA-Public Use
  Company Number: PHHY2013JP127282

PATIENT
  Sex: Female

DRUGS (2)
  1. APRESOLIN [Suspect]
     Route: 048
  2. METHYLDOPA [Suspect]
     Indication: HYPERTENSION

REACTIONS (11)
  - Premature labour [Unknown]
  - Pleural effusion [Unknown]
  - Proteinuria [Unknown]
  - Oedema [Unknown]
  - Creatinine renal clearance decreased [Unknown]
  - Glycosylated haemoglobin increased [Unknown]
  - Blood urea increased [Unknown]
  - Anaemia [Unknown]
  - Blood creatinine increased [Unknown]
  - Blood uric acid increased [Unknown]
  - Exposure during pregnancy [Unknown]
